FAERS Safety Report 7635778-7 (Version None)
Quarter: 2011Q3

REPORT INFORMATION
  Report Type: 
  Country: None (occurrence: None)
  Receive Date: 20110726
  Receipt Date: 20110712
  Transmission Date: 20111222
  Serious: Yes (Hospitalization, Other)
  Sender: FDA-Public Use
  Company Number: PHHY2011KR62179

PATIENT

DRUGS (5)
  1. OXCARBAZEPINE [Concomitant]
  2. LYRICA [Concomitant]
     Dosage: 75 MG, UNK
     Dates: end: 20100407
  3. IBUPROFEN [Concomitant]
  4. TEGRETOL-XR [Suspect]
     Dosage: UNK UKN, UNK
     Route: 048
  5. ENAFON [Concomitant]
     Dosage: 10 MG, UNK

REACTIONS (8)
  - PARAPLEGIA [None]
  - POST HERPETIC NEURALGIA [None]
  - DIZZINESS [None]
  - HERPES ZOSTER [None]
  - MUSCULAR WEAKNESS [None]
  - ORTHOSTATIC HYPOTENSION [None]
  - BLOOD CREATINE INCREASED [None]
  - BLOOD UREA INCREASED [None]
